FAERS Safety Report 10012405 (Version 2)
Quarter: 2014Q2

REPORT INFORMATION
  Report Type: Report from Study
  Country: JP (occurrence: JP)
  Receive Date: 20140314
  Receipt Date: 20140513
  Transmission Date: 20141212
  Serious: Yes (Hospitalization)
  Sender: FDA-Public Use
  Company Number: JP-ACTELION-A-CH2014-95855

PATIENT
  Age: 47 Year
  Sex: Male
  Weight: 69.8 kg

DRUGS (20)
  1. TRACLEER [Suspect]
     Indication: PERIPHERAL VASCULAR DISORDER
     Dosage: 62.5 MG, TID
     Route: 048
     Dates: start: 20120307, end: 20120601
  2. TRACLEER [Suspect]
     Dosage: 62.5 MG, BID
     Route: 048
     Dates: start: 20120204, end: 20120306
  3. TRACLEER [Suspect]
     Dosage: 125 MG, BID
     Route: 048
     Dates: start: 20120602, end: 20120731
  4. WARFARIN POTASSIUM [Suspect]
     Indication: EMBOLISM ARTERIAL
     Dosage: 2 MG, QD
     Route: 048
     Dates: start: 20120614, end: 20120617
  5. WARFARIN POTASSIUM [Suspect]
     Dosage: 3 MG, QD
     Route: 048
     Dates: start: 20120618, end: 20120620
  6. WARFARIN POTASSIUM [Suspect]
     Dosage: 3.5 MG, QD
     Route: 048
     Dates: start: 20120621, end: 20120709
  7. WARFARIN POTASSIUM [Suspect]
     Dosage: 4 MG, QD
     Route: 048
     Dates: start: 20120710, end: 20120731
  8. WARFARIN POTASSIUM [Suspect]
     Dosage: 1 MG, QD
     Route: 048
     Dates: start: 20120801
  9. ASPIRIN [Suspect]
     Indication: THROMBOSIS PROPHYLAXIS
     Dosage: 100 MG, QD
     Route: 048
     Dates: start: 20120705
  10. BERAPROST SODIUM [Concomitant]
  11. PREDNISOLONE [Concomitant]
  12. AZATHIOPRINE [Concomitant]
  13. RABEPRAZOLE [Concomitant]
  14. MAGNESIUM OXIDE [Concomitant]
  15. MONTELUKAST SODIUM [Concomitant]
  16. POTASSIUM CHLORIDE [Concomitant]
  17. CARBOCISTEINE [Concomitant]
  18. AMBROXOL HYDROCHLORIDE [Concomitant]
  19. SULFAMETHOXAZOL W/TRIMETOPRIM [Concomitant]
  20. ALENDRONATE SODIUM [Concomitant]

REACTIONS (4)
  - Peripheral vascular disorder [Recovered/Resolved]
  - Condition aggravated [Recovered/Resolved]
  - Embolism arterial [Recovered/Resolved]
  - Haemorrhage subcutaneous [Recovered/Resolved]
